FAERS Safety Report 19709231 (Version 1)
Quarter: 2021Q3

REPORT INFORMATION
  Report Type: Other
  Country: IN (occurrence: AU)
  Receive Date: 20210816
  Receipt Date: 20210816
  Transmission Date: 20211014
  Serious: Yes (Hospitalization, Other)
  Sender: FDA-Public Use
  Company Number: AU-BRECKENRIDGE PHARMACEUTICAL, INC.-2115092

PATIENT
  Age: 72 Year
  Sex: Female

DRUGS (1)
  1. CARFILZOMIB [Suspect]
     Active Substance: CARFILZOMIB
     Indication: PLASMA CELL MYELOMA
     Route: 042

REACTIONS (4)
  - Arteriospasm coronary [Unknown]
  - Myocardial ischaemia [Unknown]
  - Dyspnoea exertional [Recovered/Resolved]
  - Coronary artery disease [Unknown]
